FAERS Safety Report 24572431 (Version 1)
Quarter: 2024Q4

REPORT INFORMATION
  Report Type: Spontaneous
  Country: US (occurrence: None)
  Receive Date: 20241101
  Receipt Date: 20241101
  Transmission Date: 20250114
  Serious: Yes (Other)
  Sender: Public
  Company Number: None

PATIENT
  Age: 64 Year
  Sex: 0

DRUGS (1)
  1. EMPAGLIFLOZIN [Suspect]
     Active Substance: EMPAGLIFLOZIN
     Dosage: FREQUENCY : DAILY;?
     Route: 048

REACTIONS (6)
  - Hypotension [None]
  - Anion gap increased [None]
  - Blood bicarbonate decreased [None]
  - Blood lactic acid decreased [None]
  - Blood ketone body increased [None]
  - Hypophagia [None]

NARRATIVE: CASE EVENT DATE: 20240919
